FAERS Safety Report 9275660 (Version 1)
Quarter: 2013Q2

REPORT INFORMATION
  Report Type: Report from Study
  Country: US (occurrence: US)
  Receive Date: 20130507
  Receipt Date: 20130507
  Transmission Date: 20140414
  Serious: Yes (Death)
  Sender: FDA-Public Use
  Company Number: US-SANOFI-AVENTIS-2013SA045911

PATIENT
  Age: 72 Year
  Sex: Male
  Weight: 93 kg

DRUGS (4)
  1. DOCETAXEL [Suspect]
     Indication: PROSTATE CANCER
     Dosage: 12 CYCLES IN TOTAL
     Route: 065
     Dates: start: 20090713, end: 20100303
  2. BLINDED THERAPY [Suspect]
     Indication: PROSTATE CANCER
     Dosage: 12 CYCLES IN TOTAL
     Route: 065
     Dates: start: 20090713, end: 20100323
  3. PREDNISONE [Suspect]
     Indication: PROSTATE CANCER
     Dosage: 12 CYCLES IN TOTAL
     Route: 065
     Dates: start: 20090713, end: 20100323
  4. DEXAMETHASONE [Concomitant]
     Route: 065

REACTIONS (1)
  - Right ventricular dysfunction [Fatal]
